FAERS Safety Report 19120801 (Version 1)
Quarter: 2021Q2

REPORT INFORMATION
  Report Type: Spontaneous
  Country: US (occurrence: US)
  Receive Date: 20210411
  Receipt Date: 20210411
  Transmission Date: 20210717
  Serious: Yes (Other)
  Sender: FDA-Public Use
  Company Number: None

PATIENT
  Age: 55 Year
  Sex: Female
  Weight: 94.5 kg

DRUGS (5)
  1. CHANTIX [Suspect]
     Active Substance: VARENICLINE TARTRATE
     Indication: SMOKING CESSATION THERAPY
     Dosage: ?          QUANTITY:1 TABLET(S);?
     Route: 048
  2. VITAMIN D2 (ERGOCAL) [Concomitant]
  3. COLESTIPOL HCL [Concomitant]
     Active Substance: COLESTIPOL HYDROCHLORIDE
  4. LEVOTHYROXINE. [Concomitant]
     Active Substance: LEVOTHYROXINE
  5. FENOFIBRATE. [Concomitant]
     Active Substance: FENOFIBRATE

REACTIONS (4)
  - Taste disorder [None]
  - Anger [None]
  - Mood altered [None]
  - Parosmia [None]

NARRATIVE: CASE EVENT DATE: 20160422
